FAERS Safety Report 4458837-9 (Version None)
Quarter: 2004Q3

REPORT INFORMATION
  Report Type: 
  Country: None (occurrence: None)
  Receive Date: 20040921
  Receipt Date: 20040921
  Transmission Date: 20050211
  Serious: Yes (Life-Threatening, Hospitalization)
  Sender: FDA-Public Use
  Company Number: None

PATIENT
  Age: 69 Year
  Sex: Female
  Weight: 79.1 kg

DRUGS (1)
  1. CETUXIMAB (ERBITUX) - BRISTOL-MYERS SQUIBB  100MG / 50 ML VIAL [Suspect]
     Indication: RECTAL CANCER
     Dosage: 725MG IV X1
     Route: 042
     Dates: start: 20040826

REACTIONS (7)
  - BLOOD PRESSURE DECREASED [None]
  - CARDIO-RESPIRATORY ARREST [None]
  - COMA [None]
  - ELECTROMECHANICAL DISSOCIATION [None]
  - EYE ROLLING [None]
  - FOAMING AT MOUTH [None]
  - INFUSION RELATED REACTION [None]
